FAERS Safety Report 11095068 (Version 1)
Quarter: 2015Q2

REPORT INFORMATION
  Report Type: Spontaneous
  Country: US (occurrence: US)
  Receive Date: 20150506
  Receipt Date: 20150506
  Transmission Date: 20150821
  Serious: No
  Sender: FDA-Public Use
  Company Number: US-SA-2014SA055615

PATIENT
  Age: 69 Year
  Sex: Male

DRUGS (7)
  1. LANTUS SOLOSTAR [Suspect]
     Active Substance: INSULIN GLARGINE
     Indication: TYPE 2 DIABETES MELLITUS
     Dosage: START DATE: 3-4 YEARS AGO DOSE:35 UNIT(S)
     Route: 058
  2. PREDNISONE. [Suspect]
     Active Substance: PREDNISONE
     Indication: PRODUCT USED FOR UNKNOWN INDICATION
     Route: 048
  3. LANTUS SOLOSTAR [Suspect]
     Active Substance: INSULIN GLARGINE
     Indication: TYPE 2 DIABETES MELLITUS
     Dosage: START DATE: 3-4 YEARS AGO DOSE:20 UNIT(S)
     Route: 058
     Dates: start: 201401
  4. SOLOSTAR [Concomitant]
     Active Substance: DEVICE
  5. PREDNISONE. [Suspect]
     Active Substance: PREDNISONE
     Indication: PRODUCT USED FOR UNKNOWN INDICATION
     Dosage: DOSAGE 1000 MG 5 TIMES, ROUTE INFUSION
  6. LANTUS SOLOSTAR [Suspect]
     Active Substance: INSULIN GLARGINE
     Indication: TYPE 2 DIABETES MELLITUS
     Dosage: START DATE: 3-4 YEARS AGO DOSE:15 UNIT(S)
     Route: 058
  7. APIDRA SOLOSTAR [Suspect]
     Active Substance: INSULIN GLULISINE
     Indication: TYPE 2 DIABETES MELLITUS
     Dosage: DOSAGE:4-12 UNITS BEFORE MEALS
     Route: 065
     Dates: start: 20140224

REACTIONS (7)
  - Blood glucose increased [Unknown]
  - Injection site bruising [Unknown]
  - Wrong technique in drug usage process [Unknown]
  - Weight decreased [Unknown]
  - Fall [Unknown]
  - Injection site pain [Unknown]
  - Eye injury [Unknown]

NARRATIVE: CASE EVENT DATE: 201309
